FAERS Safety Report 12137826 (Version 1)
Quarter: 2016Q1

REPORT INFORMATION
  Report Type: Spontaneous
  Country: US (occurrence: US)
  Receive Date: 20160302
  Receipt Date: 20160302
  Transmission Date: 20160526
  Serious: No
  Sender: FDA-Public Use
  Company Number: US-TEVA-640190ACC

PATIENT

DRUGS (5)
  1. BENDAMUSTINE HYDROCHLORIDE [Suspect]
     Active Substance: BENDAMUSTINE HYDROCHLORIDE
     Indication: CHRONIC LYMPHOCYTIC LEUKAEMIA REFRACTORY
  2. DUVELISIB [Suspect]
     Active Substance: DUVELISIB
     Indication: CHRONIC LYMPHOCYTIC LEUKAEMIA REFRACTORY
     Dosage: (TWICE DAILY)
     Route: 048
  3. BENDAMUSTINE HYDROCHLORIDE [Suspect]
     Active Substance: BENDAMUSTINE HYDROCHLORIDE
     Indication: NON-HODGKIN^S LYMPHOMA REFRACTORY
     Dosage: (DAYS 1 AND 2 OF THE FIRST SIX CYCLES)
     Route: 042
  4. DUVELISIB [Suspect]
     Active Substance: DUVELISIB
     Indication: NON-HODGKIN^S LYMPHOMA REFRACTORY
     Dosage: (TWICE DAILY)
     Route: 048
  5. DUVELISIB [Suspect]
     Active Substance: DUVELISIB
     Dosage: (TWICE DAILY)
     Route: 048

REACTIONS (2)
  - Prescribed overdose [Unknown]
  - Diarrhoea [Unknown]
